FAERS Safety Report 5062682-3 (Version None)
Quarter: 2006Q3

REPORT INFORMATION
  Report Type: 
  Country: None (occurrence: None)
  Receive Date: 20060725
  Receipt Date: 20060725
  Transmission Date: 20061208
  Serious: Yes (Hospitalization)
  Sender: FDA-Public Use
  Company Number: None

PATIENT
  Age: 55 Year
  Sex: Female
  Weight: 78.4723 kg

DRUGS (3)
  1. TARCEVA [Suspect]
     Indication: LARYNGEAL CANCER
     Dosage: 150MG  PO QD
     Route: 048
     Dates: end: 20060720
  2. INTRA ARTERIAL CISPLATIN [Concomitant]
  3. RADIATION THERAPY [Concomitant]

REACTIONS (8)
  - DEHYDRATION [None]
  - DIARRHOEA [None]
  - EPISTAXIS [None]
  - HAEMOGLOBIN DECREASED [None]
  - HAEMORRHAGE [None]
  - PLATELET COUNT DECREASED [None]
  - STOMATITIS [None]
  - VOMITING [None]
